FAERS Safety Report 5719467-1 (Version None)
Quarter: 2008Q2

REPORT INFORMATION
  Report Type: 
  Country: None (occurrence: None)
  Receive Date: 20080424
  Receipt Date: 20080411
  Transmission Date: 20081010
  Serious: Yes (Other)
  Sender: FDA-Public Use
  Company Number: 2008009323

PATIENT
  Age: 43 Year
  Sex: Male
  Weight: 61.2356 kg

DRUGS (1)
  1. LISTERINE WHITENING PRE-BRUSH RINSE (NO ACTIVE INGREDIENT) [Suspect]
     Indication: DENTAL CARE
     Dosage: RECOMMENDED USE TWICE DAILY, ORAL
     Route: 048
     Dates: start: 20080321, end: 20080401

REACTIONS (2)
  - AGEUSIA [None]
  - ORAL DISCOMFORT [None]
